FAERS Safety Report 10356700 (Version 1)
Quarter: 2014Q3

REPORT INFORMATION
  Report Type: Spontaneous
  Country: US (occurrence: US)
  Receive Date: 20140801
  Receipt Date: 20140801
  Transmission Date: 20150326
  Serious: Yes (Hospitalization)
  Sender: FDA-Public Use
  Company Number: US-AMGEN-USASP2014057729

PATIENT
  Age: 54 Year
  Sex: Female

DRUGS (1)
  1. ENBREL [Suspect]
     Active Substance: ETANERCEPT
     Indication: PSORIASIS
     Dosage: 50 MG, 2 TIMES/WK
     Route: 065
     Dates: start: 20140611

REACTIONS (8)
  - Stress cardiomyopathy [Recovered/Resolved]
  - Grief reaction [Not Recovered/Not Resolved]
  - Crying [Not Recovered/Not Resolved]
  - Headache [Recovered/Resolved]
  - Stress [Not Recovered/Not Resolved]
  - Hypoaesthesia [Recovered/Resolved]
  - Hypertension [Recovered/Resolved]
  - Sensory disturbance [Recovered/Resolved]

NARRATIVE: CASE EVENT DATE: 2014
